FAERS Safety Report 20385239 (Version 1)
Quarter: 2022Q1

REPORT INFORMATION
  Report Type: Other
  Country: None (occurrence: IE)
  Receive Date: 20220127
  Receipt Date: 20220127
  Transmission Date: 20220423
  Serious: Yes (Other)
  Sender: FDA-Public Use
  Company Number: IE-Nova Laboratories Limited-2124358

PATIENT
  Age: 5 Year
  Sex: Male

DRUGS (8)
  1. PURIXAN [Suspect]
     Active Substance: MERCAPTOPURINE
     Indication: B precursor type acute leukaemia
     Dates: start: 2013, end: 2016
  2. DEXAMETHASONE [Suspect]
     Active Substance: DEXAMETHASONE
     Dates: start: 2013, end: 2016
  3. VINCRISTINE [Suspect]
     Active Substance: VINCRISTINE
     Dates: start: 2013, end: 2016
  4. PEGASPARGASE [Suspect]
     Active Substance: PEGASPARGASE
     Dates: start: 2013, end: 2016
  5. METHOTREXATE [Suspect]
     Active Substance: METHOTREXATE
     Dates: start: 2013, end: 2016
  6. DOXORUBICIN [Suspect]
     Active Substance: DOXORUBICIN
     Dates: start: 2013, end: 2016
  7. CYCLOPHOSPHAMIDE [Suspect]
     Active Substance: CYCLOPHOSPHAMIDE
     Dates: start: 2013, end: 2016
  8. CYTARABINE [Suspect]
     Active Substance: CYTARABINE
     Dates: start: 2013, end: 2016

REACTIONS (3)
  - Multiple lentigines syndrome [Unknown]
  - Lentigo [Unknown]
  - Rash [Unknown]

NARRATIVE: CASE EVENT DATE: 20160101
